FAERS Safety Report 5102814-1 (Version None)
Quarter: 2006Q3

REPORT INFORMATION
  Report Type: 
  Country: None (occurrence: None)
  Receive Date: 20060912
  Receipt Date: 20060904
  Transmission Date: 20061208
  Serious: Yes (Disabling, Other)
  Sender: FDA-Public Use
  Company Number: FR-BRISTOL-MYERS SQUIBB COMPANY-13502646

PATIENT
  Age: 71 Year
  Sex: Male

DRUGS (5)
  1. VASTEN [Suspect]
     Indication: HYPERCHOLESTEROLAEMIA
     Route: 048
     Dates: start: 19971001, end: 20060801
  2. PRAVASTATIN [Suspect]
     Indication: HYPERCHOLESTEROLAEMIA
     Route: 048
     Dates: start: 20060801, end: 20060901
  3. ASPIRIN [Concomitant]
     Route: 048
     Dates: start: 19970101
  4. SECTRAL [Concomitant]
     Dates: start: 19970101
  5. TRANDOLAPRIL [Concomitant]
     Route: 048
     Dates: start: 19970101

REACTIONS (2)
  - MYALGIA [None]
  - TENDONITIS [None]
